FAERS Safety Report 11499581 (Version 1)
Quarter: 2015Q3

REPORT INFORMATION
  Report Type: Spontaneous
  Country: US (occurrence: US)
  Receive Date: 20150914
  Receipt Date: 20150914
  Transmission Date: 20151125
  Serious: No
  Sender: FDA-Public Use
  Company Number: US-TEVA-574557USA

PATIENT
  Age: 32 Year
  Sex: Female

DRUGS (1)
  1. TEMOZOLOMIDE. [Suspect]
     Active Substance: TEMOZOLOMIDE
     Indication: BRAIN NEOPLASM MALIGNANT
     Dosage: 2 CAPSULES 200 MG ORAL NIGHTLY ON DAYS 1-5
     Route: 048

REACTIONS (3)
  - Decreased interest [Unknown]
  - Depression [Unknown]
  - Anxiety [Unknown]
